FAERS Safety Report 5821924-4 (Version None)
Quarter: 2008Q3

REPORT INFORMATION
  Report Type: 
  Country: None (occurrence: None)
  Receive Date: 20080724
  Receipt Date: 20080714
  Transmission Date: 20090109
  Serious: Yes (Life-Threatening, Disabling)
  Sender: FDA-Public Use
  Company Number: JP-PFIZER INC-2008059685

PATIENT
  Age: 68 Year
  Sex: Male

DRUGS (2)
  1. CELECOX [Suspect]
     Indication: OSTEOARTHRITIS
     Dosage: DAILY DOSE:200MG
     Route: 048
  2. ANTITHROMBOTIC AGENTS [Concomitant]

REACTIONS (1)
  - SUBARACHNOID HAEMORRHAGE [None]
